FAERS Safety Report 19071559 (Version 1)
Quarter: 2021Q1

REPORT INFORMATION
  Report Type: Report from Study
  Country: US (occurrence: US)
  Receive Date: 20210330
  Receipt Date: 20210330
  Transmission Date: 20210420
  Serious: Yes (Hospitalization)
  Sender: FDA-Public Use
  Company Number: US-B.I. PHARMACEUTICALS,INC./RIDGEFIELD-2021-BI-089035

PATIENT
  Age: 62 Year
  Sex: Male

DRUGS (1)
  1. OFEV [Suspect]
     Active Substance: NINTEDANIB
     Indication: PULMONARY FIBROSIS
     Dosage: 100 MG BY MOUTH TWICE DAILY
     Route: 048
     Dates: start: 20210224, end: 202103

REACTIONS (6)
  - Vomiting [Unknown]
  - Epistaxis [Unknown]
  - Throat tightness [Unknown]
  - Abdominal pain [Unknown]
  - Nephrolithiasis [Unknown]
  - Dyspnoea [Unknown]

NARRATIVE: CASE EVENT DATE: 202102
